FAERS Safety Report 7326532-4 (Version None)
Quarter: 2011Q1

REPORT INFORMATION
  Report Type: 
  Country: None (occurrence: None)
  Receive Date: 20110302
  Receipt Date: 20110207
  Transmission Date: 20110831
  Serious: Yes (Other)
  Sender: FDA-Public Use
  Company Number: US-BAYER-201038373NA

PATIENT
  Sex: Female

DRUGS (4)
  1. YASMIN [Suspect]
     Indication: ACNE
     Dosage: UNK
     Dates: start: 20030101
  2. YASMIN [Suspect]
     Indication: CONTRACEPTION
  3. YAZ [Suspect]
     Indication: ACNE
  4. OCELLA [Suspect]
     Indication: ACNE

REACTIONS (3)
  - CHOLECYSTECTOMY [None]
  - INJURY [None]
  - PAIN [None]
